FAERS Safety Report 24241984 (Version 1)
Quarter: 2024Q3

REPORT INFORMATION
  Report Type: Spontaneous
  Country: IT (occurrence: IT)
  Receive Date: 20240823
  Receipt Date: 20240823
  Transmission Date: 20241017
  Serious: Yes (Life-Threatening, Hospitalization, Other)
  Sender: ACCORD
  Company Number: None

PATIENT
  Age: 62 Year
  Sex: Male

DRUGS (3)
  1. FLUOROURACIL [Suspect]
     Active Substance: FLUOROURACIL
     Indication: Oesophageal adenocarcinoma stage IV
     Dosage: 5-FU BOLUS 400MG/M2 G1 / 5-FU I.C. 2400MG/M2 FOR 44 HOURS EVERY 14?DAYS, DOSE REDUCED BY 40%
     Dates: start: 20231013, end: 20240417
  2. OXALIPLATIN [Suspect]
     Active Substance: OXALIPLATIN
     Indication: Oesophageal adenocarcinoma stage IV
     Dosage: 100 MG/M2 EVERY 14 DAYS, DOSE REDUCED BY 40%
     Dates: start: 20231011, end: 20240417
  3. NIVOLUMAB [Suspect]
     Active Substance: NIVOLUMAB
     Indication: Oesophageal adenocarcinoma stage IV
     Dosage: 240 MG EVERY 14 DAYS IN COMBINATION WITH FOLOFOX
     Dates: start: 20231110, end: 20240417

REACTIONS (7)
  - Cerebral ischaemia [Recovering/Resolving]
  - Generalised tonic-clonic seizure [Recovering/Resolving]
  - Oxygen saturation decreased [Recovering/Resolving]
  - Autoimmune hypothyroidism [Recovering/Resolving]
  - Thrombocytopenia [Recovered/Resolved]
  - Cardiomyopathy [Recovering/Resolving]
  - Autoimmune lung disease [Recovering/Resolving]

NARRATIVE: CASE EVENT DATE: 20231101
